FAERS Safety Report 25254983 (Version 2)
Quarter: 2025Q2

REPORT INFORMATION
  Report Type: Other
  Country: MA (occurrence: MA)
  Receive Date: 20250430
  Receipt Date: 20250515
  Transmission Date: 20250717
  Serious: Yes (Other)
  Sender: ANI
  Company Number: MA-ANIPHARMA-022601

PATIENT
  Age: 45 Year
  Sex: Male

DRUGS (1)
  1. SULFAMETHOXAZOLE\TRIMETHOPRIM [Suspect]
     Active Substance: SULFAMETHOXAZOLE\TRIMETHOPRIM
     Indication: Gastroenteritis

REACTIONS (1)
  - Generalised bullous fixed drug eruption [Recovering/Resolving]
